FAERS Safety Report 4343137-8 (Version None)
Quarter: 2004Q2

REPORT INFORMATION
  Report Type: 
  Country: None (occurrence: None)
  Receive Date: 20040416
  Receipt Date: 20040405
  Transmission Date: 20050107
  Serious: Yes (Other)
  Sender: FDA-Public Use
  Company Number: US-JNJFOC-20040400759

PATIENT
  Age: 54 Year
  Sex: Female
  Weight: 53.978 kg

DRUGS (10)
  1. INFLIXIMAB (INFLIXIMAB, RECOMBINANT) LYOPHILIZED POWDER [Suspect]
     Indication: RHEUMATOID ARTHRITIS
     Dosage: 200 MG, 2 IN 1 DAY
     Dates: start: 20001214, end: 20031105
  2. CELEBREX [Concomitant]
  3. CHROMAGEN FA (CHROMAGEN) [Concomitant]
  4. PREMPRO 14/14 [Concomitant]
  5. PROTONIX [Concomitant]
  6. ARAVA [Concomitant]
  7. METHOTREXATE [Concomitant]
  8. IMITREX [Concomitant]
  9. FLORICET (FLUDROCORTISONE ACETATE) [Concomitant]
  10. CALCIUM (CALCIUM) [Concomitant]

REACTIONS (1)
  - BASAL CELL CARCINOMA [None]
